FAERS Safety Report 14797423 (Version 1)
Quarter: 2018Q2

REPORT INFORMATION
  Report Type: Spontaneous
  Country: US (occurrence: US)
  Receive Date: 20180424
  Receipt Date: 20180424
  Transmission Date: 20180711
  Serious: No
  Sender: FDA-Public Use
  Company Number: US-TEVA-766117ACC

PATIENT
  Sex: Female

DRUGS (4)
  1. LEVALBUTEROL. [Suspect]
     Active Substance: LEVALBUTEROL
     Indication: CHRONIC OBSTRUCTIVE PULMONARY DISEASE
     Dates: start: 201704
  2. VITAMINS NOS [Concomitant]
     Active Substance: VITAMINS
  3. STIOLTO RESPIMAT [Concomitant]
     Active Substance: OLODATEROL HYDROCHLORIDE\TIOTROPIUM BROMIDE MONOHYDRATE
  4. RAPAMYCIN [Concomitant]
     Active Substance: SIROLIMUS

REACTIONS (5)
  - Nervousness [Unknown]
  - Tremor [Unknown]
  - Headache [Unknown]
  - Chest pain [Unknown]
  - Dizziness [Unknown]
